FAERS Safety Report 7338267-2 (Version None)
Quarter: 2011Q1

REPORT INFORMATION
  Report Type: 
  Country: None (occurrence: None)
  Receive Date: 20110308
  Receipt Date: 20110302
  Transmission Date: 20110831
  Serious: Yes (Life-Threatening)
  Sender: FDA-Public Use
  Company Number: ES-PFIZER INC-2011046985

PATIENT

DRUGS (1)
  1. PREPIDIL [Suspect]
     Indication: LABOUR INDUCTION
     Dosage: 0.5 MG, UNK
     Route: 064
     Dates: start: 20101123

REACTIONS (2)
  - FOETAL DISTRESS SYNDROME [None]
  - BRADYCARDIA FOETAL [None]
